FAERS Safety Report 8776746 (Version 1)
Quarter: 2012Q4

REPORT INFORMATION
  Report Type: 
  Country: CN (occurrence: CN)
  Receive Date: 20120911
  Receipt Date: 20120911
  Transmission Date: 20130627
  Serious: Yes (Life-Threatening)
  Sender: FDA-Public Use
  Company Number: CN-PFIZER INC-2012218944

PATIENT
  Age: 76 Year
  Sex: Female

DRUGS (5)
  1. CORDARONE [Suspect]
     Indication: CARDIOVERSION
     Dosage: 0.2, Unknown, Twice a day
     Route: 048
     Dates: start: 20100823
  2. CORDARONE [Suspect]
     Indication: EXTRASYSTOLES
  3. FLUCONAZOLE [Suspect]
     Indication: CANDIDIASIS
     Dosage: unknown, daily (0.1x2 iv drip (15 drip/min))
     Route: 041
     Dates: start: 20100816
  4. THEOPHYLLINE [Suspect]
     Indication: PRODUCT USED FOR UNKNOWN INDICATION
     Dosage: 0.1, Unknown, Twice a day
     Route: 048
     Dates: start: 20100816
  5. GLUCOSE [Concomitant]
     Dosage: 5%GS 250 ml
     Dates: start: 20100816

REACTIONS (1)
  - Ventricular tachycardia [Recovered/Resolved]
